FAERS Safety Report 4633600-4 (Version None)
Quarter: 2005Q2

REPORT INFORMATION
  Report Type: 
  Country: None (occurrence: None)
  Receive Date: 20050412
  Receipt Date: 20050412
  Transmission Date: 20051028
  Serious: No
  Sender: FDA-Public Use
  Company Number: None

PATIENT
  Sex: Female

DRUGS (5)
  1. TYLENOL [Suspect]
  2. FLEXERIL [Suspect]
     Dosage: 10 MG TID
  3. OXYCONTIN [Suspect]
     Dosage: 40 MG TID
  4. ELAVIL [Suspect]
     Dosage: 100 MG PO HS
     Route: 048
  5. VOLTAREN [Suspect]
     Dosage: 50 MG PO TID
     Route: 048

REACTIONS (4)
  - BACK PAIN [None]
  - CARPAL TUNNEL SYNDROME [None]
  - RADICULOPATHY [None]
  - SPINAL OSTEOARTHRITIS [None]
